FAERS Safety Report 8840254 (Version 1)
Quarter: 2012Q4

REPORT INFORMATION
  Report Type: 
  Country: GB (occurrence: GB)
  Receive Date: 20121015
  Receipt Date: 20121015
  Transmission Date: 20130627
  Serious: Yes (Other)
  Sender: FDA-Public Use
  Company Number: GB-GLAXOSMITHKLINE-B0836745A

PATIENT
  Age: 75 Year
  Sex: Female
  Weight: 81 kg

DRUGS (10)
  1. ACICLOVIR [Suspect]
     Indication: HERPES ZOSTER
     Dosage: 4000MG Per day
     Route: 048
     Dates: start: 20120910, end: 20120912
  2. VENTOLIN [Concomitant]
  3. SERETIDE [Concomitant]
  4. ALENDRONIC ACID [Concomitant]
  5. PREDNISOLONE [Concomitant]
  6. CETIRIZINE [Concomitant]
  7. ADIZEM-XL [Concomitant]
  8. CLOPIDOGREL [Concomitant]
  9. ATORVASTATIN [Concomitant]
  10. FLUTICASONE FUROATE [Concomitant]

REACTIONS (9)
  - VIIth nerve paralysis [Unknown]
  - Hepatic enzyme increased [Not Recovered/Not Resolved]
  - Vomiting [Not Recovered/Not Resolved]
  - Nausea [Not Recovered/Not Resolved]
  - Facial paresis [Unknown]
  - Malaise [Not Recovered/Not Resolved]
  - Lethargy [Not Recovered/Not Resolved]
  - Alanine aminotransferase increased [Not Recovered/Not Resolved]
  - Blood alkaline phosphatase increased [Not Recovered/Not Resolved]
